FAERS Safety Report 9028538 (Version 2)
Quarter: 2013Q1

REPORT INFORMATION
  Report Type: Report from Study
  Country: AU (occurrence: AU)
  Receive Date: 20130124
  Receipt Date: 20130213
  Transmission Date: 20140127
  Serious: Yes (Other)
  Sender: FDA-Public Use
  Company Number: AU-ROCHE-1181273

PATIENT
  Age: 88 Year
  Sex: Female

DRUGS (6)
  1. RANIBIZUMAB [Suspect]
     Indication: AGE-RELATED MACULAR DEGENERATION
     Route: 050
     Dates: start: 20111223
  2. RANIBIZUMAB [Suspect]
     Route: 050
     Dates: start: 20121011
  3. KARVEA [Concomitant]
     Indication: HYPERTENSION
     Route: 065
  4. NORVASC [Concomitant]
     Indication: HYPERTENSION
     Route: 065
  5. PRAVACHOL [Concomitant]
     Indication: HYPERLIPIDAEMIA
     Route: 065
  6. TRITACE [Concomitant]
     Indication: HYPERTENSION
     Route: 065

REACTIONS (5)
  - Left atrial dilatation [Unknown]
  - Left ventricular hypertrophy [Unknown]
  - Pulmonary hypertension [Unknown]
  - Atrial fibrillation [Unknown]
  - Mitral valve incompetence [Unknown]
